FAERS Safety Report 5482405-3 (Version None)
Quarter: 2007Q4

REPORT INFORMATION
  Report Type: 
  Country: None (occurrence: None)
  Receive Date: 20071011
  Receipt Date: 20071002
  Transmission Date: 20080405
  Serious: Yes (Life-Threatening, Hospitalization)
  Sender: FDA-Public Use
  Company Number: B0489813A

PATIENT
  Age: 82 Year
  Sex: Female
  Weight: 65 kg

DRUGS (9)
  1. ARIXTRA [Suspect]
     Dosage: 1.5MG PER DAY
     Route: 058
     Dates: start: 20070912, end: 20070915
  2. LASIX [Concomitant]
  3. ZESTRIL [Concomitant]
  4. KARDEGIC [Concomitant]
  5. AMLOR [Concomitant]
  6. AMARYL [Concomitant]
  7. VASTAREL [Concomitant]
  8. LEXOMIL [Concomitant]
     Indication: ANXIETY
  9. CONTRAMAL [Concomitant]

REACTIONS (3)
  - ANAEMIA [None]
  - ANGINA PECTORIS [None]
  - ELECTROCARDIOGRAM ST SEGMENT DEPRESSION [None]
